FAERS Safety Report 16836409 (Version 1)
Quarter: 2019Q3

REPORT INFORMATION
  Report Type: Spontaneous
  Country: DK (occurrence: DK)
  Receive Date: 20190921
  Receipt Date: 20190921
  Transmission Date: 20191005
  Serious: Yes (Hospitalization)
  Sender: FDA-Public Use
  Company Number: DK-AUROBINDO-AUR-APL-2019-060854

PATIENT
  Age: 76 Year
  Sex: Female
  Weight: 74 kg

DRUGS (15)
  1. ONDANSETRON [Suspect]
     Active Substance: ONDANSETRON
     Dosage: UNK, 4 UNK
     Route: 048
     Dates: start: 20190812, end: 20190815
  2. FURIX (CEFUROXIME) [Suspect]
     Active Substance: CEFUROXIME
     Dosage: UNK, 750 UNK
     Route: 048
     Dates: start: 20190813, end: 20190814
  3. TAZOBACTAM [Suspect]
     Active Substance: TAZOBACTAM
     Indication: PRODUCT USED FOR UNKNOWN INDICATION
     Dosage: UNK, 1 UNK
     Route: 042
     Dates: start: 20190809, end: 20190816
  4. CEFUROXIM [Suspect]
     Active Substance: CEFUROXIME
     Indication: PRODUCT USED FOR UNKNOWN INDICATION
     Dosage: UNK, 750 UNK
     Route: 042
     Dates: start: 20190807, end: 20190809
  5. MORFIN (MORPHINE) [Suspect]
     Active Substance: MORPHINE
     Indication: PAIN
     Dosage: UNK, 10 UNK
     Route: 048
     Dates: start: 20190809, end: 20190812
  6. FRAGMIN [Suspect]
     Active Substance: DALTEPARIN SODIUM
     Indication: PRODUCT USED FOR UNKNOWN INDICATION
     Dosage: UNK, 5000 UNK
     Route: 058
     Dates: start: 20190807, end: 20190815
  7. ONDANSETRON [Suspect]
     Active Substance: ONDANSETRON
     Indication: NAUSEA
     Dosage: UNK, 4 UNK
     Route: 042
     Dates: start: 20190812, end: 20190813
  8. CEFUROXIM [Suspect]
     Active Substance: CEFUROXIME
     Dosage: UNK, 150 UNK
     Route: 042
     Dates: start: 20190808, end: 20190808
  9. FURIX (CEFUROXIME) [Suspect]
     Active Substance: CEFUROXIME
     Indication: FLUID OVERLOAD
     Dosage: UNK, 500 UNK
     Route: 048
     Dates: start: 20190812, end: 20190813
  10. AMOXILLIN [Suspect]
     Active Substance: AMOXICILLIN
     Indication: PNEUMONIA
     Dosage: UNK, 1500 UNK
     Route: 048
     Dates: start: 20190816, end: 20190822
  11. BERODUAL [Suspect]
     Active Substance: FENOTEROL HYDROBROMIDE\IPRATROPIUM BROMIDE
     Indication: PAIN
     Dosage: UNK, 1.25 UNK
     Route: 055
     Dates: start: 20190810, end: 20190811
  12. PANODIL [Suspect]
     Active Substance: ACETAMINOPHEN
     Indication: PAIN
     Dosage: UNK, 1000 UNK
     Route: 048
     Dates: start: 20190809, end: 20190816
  13. FURIX (CEFUROXIME) [Suspect]
     Active Substance: CEFUROXIME
     Dosage: UNK, 375 UNK
     Route: 048
     Dates: start: 20190815, end: 20190815
  14. HEPARIN SODIUM. [Suspect]
     Active Substance: HEPARIN SODIUM
     Indication: PRODUCT USED FOR UNKNOWN INDICATION
     Dosage: UNK, 500 UNK
     Route: 042
     Dates: start: 20190808, end: 20190808
  15. PIPERACILLIN. [Suspect]
     Active Substance: PIPERACILLIN SODIUM
     Indication: PRODUCT USED FOR UNKNOWN INDICATION
     Dosage: UNK, 8 UNK
     Route: 042
     Dates: start: 20190809, end: 20190816

REACTIONS (2)
  - Condition aggravated [Recovered/Resolved]
  - Intermittent claudication [Recovered/Resolved]

NARRATIVE: CASE EVENT DATE: 20190807
